FAERS Safety Report 4687592-2 (Version None)
Quarter: 2005Q2

REPORT INFORMATION
  Report Type: 
  Country: None (occurrence: None)
  Receive Date: 20050610
  Receipt Date: 20050601
  Transmission Date: 20051028
  Serious: Yes (Other)
  Sender: FDA-Public Use
  Company Number: ES-BRISTOL-MYERS SQUIBB COMPANY-12991410

PATIENT
  Age: 35 Year
  Sex: Male

DRUGS (10)
  1. ACETAMINOPHEN IV [Suspect]
     Indication: PYREXIA
     Dosage: DOSE VALUE: 1 TO 2 GRAM
     Route: 042
     Dates: start: 20050503, end: 20050518
  2. TRAZODONE HCL [Interacting]
     Indication: DEPRESSION
     Dates: start: 20050515, end: 20050515
  3. POSACONAZOLE [Interacting]
     Indication: FUNGAL INFECTION
     Route: 048
     Dates: start: 20050513, end: 20050518
  4. FLUOXETINE [Interacting]
     Indication: DEPRESSION
     Dosage: THERAPY START DATE:  REPORTED AS BOTH ^16-APR-2005 AND 26-APR-2005^
     Dates: start: 20050401, end: 20050518
  5. AMPHOTERICIN B [Interacting]
     Indication: FUNGAL INFECTION
     Dates: start: 20050509
  6. GLEEVEC [Interacting]
     Dates: start: 20050504, end: 20050518
  7. GLEEVEC [Interacting]
     Dates: start: 20050504, end: 20050518
  8. OMEPRAZOLE [Interacting]
     Dates: start: 20050501
  9. VORICONAZOLE [Concomitant]
  10. CASPOFUNGIN ACETATE [Concomitant]

REACTIONS (4)
  - DRUG INTERACTION [None]
  - HEPATITIS TOXIC [None]
  - MUCORMYCOSIS [None]
  - PROTHROMBIN TIME ABNORMAL [None]
